FAERS Safety Report 9565779 (Version 1)
Quarter: 2013Q3

REPORT INFORMATION
  Report Type: Spontaneous
  Country: FR (occurrence: FR)
  Receive Date: 20130930
  Receipt Date: 20130930
  Transmission Date: 20140515
  Serious: Yes (Hospitalization)
  Sender: FDA-Public Use
  Company Number: FR-GLAXOSMITHKLINE-B0923464A

PATIENT
  Age: 74 Year
  Sex: Female

DRUGS (5)
  1. AZANTAC [Suspect]
     Indication: PREMEDICATION
     Dosage: 50MG SINGLE DOSE
     Route: 042
     Dates: start: 20130821, end: 20130821
  2. POLARAMINE [Suspect]
     Indication: PREMEDICATION
     Dosage: 5MG SINGLE DOSE
     Route: 042
     Dates: start: 20130821, end: 20130821
  3. XYZALL [Suspect]
     Indication: PREMEDICATION
     Dosage: 5MG SINGLE DOSE
     Route: 048
     Dates: start: 20130828, end: 20130828
  4. METHYLPREDNISOLONE [Suspect]
     Indication: PREMEDICATION
     Dosage: 40MG SINGLE DOSE
     Route: 042
     Dates: start: 20130821, end: 20130821
  5. PACLITAXEL [Concomitant]
     Indication: BREAST CANCER
     Dates: start: 20130226

REACTIONS (6)
  - Malaise [Recovered/Resolved]
  - Hypotension [Recovered/Resolved]
  - Pruritus [Recovered/Resolved]
  - Erythema [Recovered/Resolved]
  - Vomiting [Recovered/Resolved]
  - Fall [Recovered/Resolved]
